FAERS Safety Report 8033031-3 (Version None)
Quarter: 2012Q1

REPORT INFORMATION
  Report Type: 
  Country: None (occurrence: None)
  Receive Date: 20120110
  Receipt Date: 20120103
  Transmission Date: 20120608
  Serious: Yes (Other)
  Sender: FDA-Public Use
  Company Number: FR-B.I. PHARMACEUTICALS,INC./RIDGEFIELD-2011-FF-01240FF

PATIENT
  Age: 62 Year
  Sex: Female
  Weight: 77 kg

DRUGS (9)
  1. LASIX [Concomitant]
     Route: 048
  2. PRAZEPAM [Concomitant]
     Route: 048
  3. PERINDOPRIL ERBUMINE [Concomitant]
     Route: 048
  4. EFFEXOR [Concomitant]
     Route: 048
  5. TRIMEPRAZINE TARTRATE [Concomitant]
  6. XANAX [Concomitant]
     Route: 048
  7. PANTOPRAZOLE SODIUM [Concomitant]
     Route: 048
  8. PRADAXA [Suspect]
     Indication: KNEE ARTHROPLASTY
     Dosage: 220 MG
     Route: 048
     Dates: start: 20111130, end: 20111212
  9. FEMARA [Concomitant]

REACTIONS (1)
  - AGRANULOCYTOSIS [None]
